FAERS Safety Report 5226026-6 (Version None)
Quarter: 2007Q1

REPORT INFORMATION
  Report Type: 
  Country: None (occurrence: None)
  Receive Date: 20070129
  Receipt Date: 20070123
  Transmission Date: 20070707
  Serious: Yes (Hospitalization)
  Sender: FDA-Public Use
  Company Number: 232653

PATIENT
  Age: 66 Year
  Sex: Female
  Weight: 100.2 kg

DRUGS (4)
  1. BEVACIZUMAB (BEVACIZUMAB) PWDR + SOLVENT, INFUSION SOLN, 100MG [Suspect]
     Indication: BREAST CANCER METASTATIC
     Dosage: 1590 MG, Q3W, INTRAVENOUS
     Route: 042
     Dates: start: 20060630, end: 20061020
  2. BEVACIZUMAB (BEVACIZUMAB) PWDR + SOLVENT, INFUSION SOLN, 100MG [Suspect]
  3. GEMCITABINE [Concomitant]
  4. CALCIUM (CALCIUM NOS) [Concomitant]

REACTIONS (9)
  - CELLULITIS [None]
  - CELLULITIS STAPHYLOCOCCAL [None]
  - CONDITION AGGRAVATED [None]
  - HAEMATOCRIT DECREASED [None]
  - HAEMOGLOBIN DECREASED [None]
  - OEDEMA PERIPHERAL [None]
  - PSEUDOMONAS INFECTION [None]
  - PURULENCE [None]
  - ULCER [None]
